FAERS Safety Report 6929528-7 (Version None)
Quarter: 2010Q3

REPORT INFORMATION
  Report Type: 
  Country: None (occurrence: None)
  Receive Date: 20100818
  Receipt Date: 20100803
  Transmission Date: 20110219
  Serious: Yes (Other)
  Sender: FDA-Public Use
  Company Number: US-BAYER-201013865NA

PATIENT
  Age: 83 Year
  Sex: Male

DRUGS (3)
  1. CAMPATH [Suspect]
     Indication: APLASTIC ANAEMIA
     Dosage: TOTAL DAILY DOSE: 3 MG
     Route: 058
     Dates: start: 20100209
  2. CAMPATH [Suspect]
     Dosage: AS USED: 10 MG
  3. CAMPATH [Suspect]
     Dosage: AS USED: 30 MG

REACTIONS (2)
  - ATRIAL FIBRILLATION [None]
  - INJECTION SITE REACTION [None]
